FAERS Safety Report 9563373 (Version 1)
Quarter: 2013Q3

REPORT INFORMATION
  Report Type: Spontaneous
  Country: ES (occurrence: ES)
  Receive Date: 20130927
  Receipt Date: 20130927
  Transmission Date: 20140515
  Serious: Yes (Life-Threatening, Hospitalization)
  Sender: FDA-Public Use
  Company Number: ES-B.I. PHARMACEUTICALS,INC./RIDGEFIELD-2013-ES-00535ES

PATIENT
  Age: 19 Year
  Sex: Male

DRUGS (2)
  1. VIRAMUNE [Suspect]
     Indication: ASYMPTOMATIC HIV INFECTION
     Dosage: 400 MG
     Route: 048
     Dates: start: 201112, end: 20121224
  2. COMBIVIR [Suspect]
     Indication: ASYMPTOMATIC HIV INFECTION
     Dosage: 150MG/300MG. DAILY DOSE: 1 DF
     Route: 048
     Dates: start: 201112, end: 20121224

REACTIONS (2)
  - Toxic epidermal necrolysis [Recovered/Resolved]
  - Drug interaction [Unknown]
